FAERS Safety Report 4931265-5 (Version None)
Quarter: 2006Q1

REPORT INFORMATION
  Report Type: 
  Country: None (occurrence: None)
  Receive Date: 20060227
  Receipt Date: 20060220
  Transmission Date: 20060701
  Serious: Yes (Death, Life-Threatening)
  Sender: FDA-Public Use
  Company Number: 2005-135784-NL

PATIENT
  Age: 35 Year
  Sex: Male

DRUGS (6)
  1. DANAPAROID SODIUM [Suspect]
     Indication: DISSEMINATED INTRAVASCULAR COAGULATION
     Dosage: 1250 ANTI_XA BID
     Route: 041
     Dates: start: 20051114, end: 20051129
  2. ANTI HIV [Concomitant]
  3. FACTOR VIII, RECOMBINANT [Concomitant]
  4. VANCOMYCIN [Concomitant]
  5. ACYCLOVIR [Concomitant]
  6. OMEPRAZOLE [Concomitant]

REACTIONS (1)
  - SUBDURAL HAEMATOMA [None]
